FAERS Safety Report 6941463 (Version 2)
Quarter: 2021Q2

REPORT INFORMATION
  Report Type: Spontaneous
  Country: AU (occurrence: AU)
  Receive Date: 20090316
  Receipt Date: 20210421
  Transmission Date: 20210717
  Serious: Yes (Life-Threatening, Hospitalization, Other)
  Sender: FDA-Public Use
  Company Number: AU-PFIZER INC-2009177959

PATIENT
  Age: 45 Year
  Sex: Female

DRUGS (4)
  1. CELECOXIB. [Suspect]
     Active Substance: CELECOXIB
     Dosage: 2 G
  2. PARACETAMOL [Suspect]
     Active Substance: ACETAMINOPHEN
     Dosage: 12 G
  3. CLARITHROMYCIN. [Suspect]
     Active Substance: CLARITHROMYCIN
     Dosage: 3.5 G
  4. HYDROXYCHLOROQUINE SULFATE. [Suspect]
     Active Substance: HYDROXYCHLOROQUINE SULFATE
     Dosage: 20 G

REACTIONS (5)
  - Hypothermia [Recovered/Resolved]
  - Hypokalaemia [Recovered/Resolved]
  - Pulse absent [Recovered/Resolved]
  - Overdose [Recovered/Resolved]
  - Circulatory collapse [Recovered/Resolved]
